FAERS Safety Report 9825972 (Version 1)
Quarter: 2014Q1

REPORT INFORMATION
  Report Type: Spontaneous
  Country: US (occurrence: None)
  Receive Date: 20140116
  Receipt Date: 20140116
  Transmission Date: 20141002
  Serious: Yes (Death, Hospitalization)
  Sender: FDA-Public Use
  Company Number: None

PATIENT
  Age: 86 Year
  Sex: Male
  Weight: 61.24 kg

DRUGS (1)
  1. AMIODARONE [Suspect]
     Indication: CARDIOVERSION
     Dosage: 150 ?INTO A VEIN
     Route: 042

REACTIONS (1)
  - Pulmonary fibrosis [None]
